FAERS Safety Report 10429748 (Version 1)
Quarter: 2014Q3

REPORT INFORMATION
  Report Type: Spontaneous
  Country: US (occurrence: US)
  Receive Date: 20140904
  Receipt Date: 20140904
  Transmission Date: 20150326
  Serious: Yes (Death)
  Sender: FDA-Public Use
  Company Number: US-MALLINCKRODT-T201403234

PATIENT
  Age: 20 Year
  Sex: Female

DRUGS (4)
  1. TECHNESCAN LYOMAA (ALBUMIN (HUMAN)\STANNOUS CHLORIDE) [Suspect]
     Active Substance: ALBUMIN (HUMAN)\STANNOUS CHLORIDE
     Indication: VENTILATION/PERFUSION SCAN
     Dosage: 4.4 MG, (AVERAGE PARTICLE SIZE 30-40 U)
     Route: 042
  2. TECHNESCAN LYOMAA (ALBUMIN (HUMAN)\STANNOUS CHLORIDE) [Suspect]
     Active Substance: ALBUMIN (HUMAN)\STANNOUS CHLORIDE
     Dosage: 4.3 MG,(AVERAGE PARTICLE SIZE 75 U)
     Route: 042
  3. ULTRA-TECHNEKOW DTE [Suspect]
     Active Substance: MOLYBDENUM MO-99\TECHNETIUM TC-99M
     Indication: VENTILATION/PERFUSION SCAN
     Dosage: UNK
     Route: 042
  4. ULTRA-TECHNEKOW DTE [Suspect]
     Active Substance: MOLYBDENUM MO-99\TECHNETIUM TC-99M
     Dosage: UNK
     Route: 042

REACTIONS (4)
  - Ventricular arrhythmia [Fatal]
  - Apnoea [Fatal]
  - Cyanosis [Fatal]
  - Dyspnoea [Fatal]
